FAERS Safety Report 24112551 (Version 2)
Quarter: 2024Q3

REPORT INFORMATION
  Report Type: Spontaneous
  Country: BR (occurrence: None)
  Receive Date: 20240719
  Receipt Date: 20240828
  Transmission Date: 20241016
  Serious: Yes (Congenital Anomaly)
  Sender: ASTRAZENECA
  Company Number: 2024A163535

PATIENT
  Sex: Female

DRUGS (1)
  1. DAPAGLIFLOZIN [Suspect]
     Active Substance: DAPAGLIFLOZIN
     Dosage: 10.0MG UNKNOWN
     Route: 048

REACTIONS (5)
  - Dizziness [Recovered/Resolved]
  - Malaise [Recovered/Resolved]
  - Tremor [Recovered/Resolved]
  - Product physical issue [Unknown]
  - Product use issue [Unknown]
